FAERS Safety Report 20599727 (Version 1)
Quarter: 2022Q1

REPORT INFORMATION
  Report Type: Spontaneous
  Country: US (occurrence: US)
  Receive Date: 20220316
  Receipt Date: 20220316
  Transmission Date: 20220423
  Serious: No
  Sender: FDA-Public Use
  Company Number: US-CELGENE-USA-20220304334

PATIENT
  Sex: Female

DRUGS (1)
  1. REVLIMID [Suspect]
     Active Substance: LENALIDOMIDE
     Indication: Plasma cell myeloma
     Dosage: 25 MILLIGRAM
     Route: 048
     Dates: start: 20220217

REACTIONS (7)
  - Visual impairment [Unknown]
  - Photophobia [Unknown]
  - Diarrhoea [Unknown]
  - Chills [Unknown]
  - Dehydration [Unknown]
  - Fatigue [Unknown]
  - Hypotension [Unknown]
